FAERS Safety Report 10788738 (Version 1)
Quarter: 2015Q1

REPORT INFORMATION
  Report Type: Spontaneous
  Country: BR (occurrence: BR)
  Receive Date: 20150212
  Receipt Date: 20150212
  Transmission Date: 20150721
  Serious: Yes (Other)
  Sender: FDA-Public Use
  Company Number: BR-GLAXOSMITHKLINE-BR2015GSK009267

PATIENT
  Sex: Female
  Weight: 56 kg

DRUGS (7)
  1. RELVAR ELLIPTA [Suspect]
     Active Substance: FLUTICASONE FUROATE\VILANTEROL TRIFENATATE
     Indication: ASTHMA
     Dosage: 1 PUFF(S), QD
     Route: 048
  2. SIMETHICONE [Concomitant]
     Active Substance: DIMETHICONE\SILICON DIOXIDE\SIMETHICONE
     Indication: ABDOMINAL DISTENSION
     Dosage: 1 UNK, QD
     Route: 048
  3. CAPTOPRIL. [Concomitant]
     Active Substance: CAPTOPRIL
     Indication: BLOOD PRESSURE
     Dosage: 1 UNK, QD
     Route: 060
  4. RELVAR ELLIPTA [Suspect]
     Active Substance: FLUTICASONE FUROATE\VILANTEROL TRIFENATATE
     Dosage: UNK
  5. OMEPRAZOLE. [Concomitant]
     Active Substance: OMEPRAZOLE
     Indication: PROPHYLAXIS
     Dosage: 1 UNK, QD
     Route: 048
  6. SERETIDE [Suspect]
     Active Substance: FLUTICASONE FUROATE\SALMETEROL XINAFOATE
     Indication: ASTHMA
     Dosage: 2 PUFF(S), QD
     Route: 048
  7. RIVOTRIL [Concomitant]
     Active Substance: CLONAZEPAM
     Indication: ANXIETY
     Dosage: 1 UNK, QD
     Route: 048

REACTIONS (4)
  - Hypertension [Recovered/Resolved]
  - Dyspnoea [Recovered/Resolved]
  - Drug ineffective [Recovered/Resolved]
  - Asthmatic crisis [Recovered/Resolved]
